FAERS Safety Report 9781640 (Version 2)
Quarter: 2013Q4

REPORT INFORMATION
  Report Type: Spontaneous
  Country: DK (occurrence: DK)
  Receive Date: 20131224
  Receipt Date: 20131224
  Transmission Date: 20140711
  Serious: Yes (Disabling)
  Sender: FDA-Public Use
  Company Number: DK-GE HEALTHCARE MEDICAL DIAGNOSTICS-OSCN-NO-0910S-0446

PATIENT
  Age: 59 Year
  Sex: Female
  Weight: 50 kg

DRUGS (1)
  1. OMNISCAN [Suspect]
     Indication: PELVIC PAIN
     Route: 042
     Dates: start: 20050617, end: 20050617

REACTIONS (1)
  - Nephrogenic systemic fibrosis [Not Recovered/Not Resolved]
